FAERS Safety Report 6358331-4 (Version None)
Quarter: 2009Q3

REPORT INFORMATION
  Report Type: 
  Country: None (occurrence: None)
  Receive Date: 20090911
  Receipt Date: 20090903
  Transmission Date: 20100115
  Serious: Yes (Hospitalization)
  Sender: FDA-Public Use
  Company Number: 230022J09AUS

PATIENT
  Age: 56 Year
  Sex: Female

DRUGS (4)
  1. REBIF [Suspect]
     Indication: MULTIPLE SCLEROSIS
     Dosage: SUBCUTANEOUS ; 44 MCG
     Route: 058
     Dates: start: 20090728
  2. REBIF [Suspect]
     Indication: MULTIPLE SCLEROSIS
     Dosage: SUBCUTANEOUS ; 44 MCG
     Route: 058
     Dates: start: 20090801
  3. ISOPTIN [Concomitant]
  4. ANTIHISTAMINE (ANTIHISTAMINES) [Concomitant]

REACTIONS (1)
  - MIGRAINE [None]
